FAERS Safety Report 11218182 (Version 1)
Quarter: 2015Q2

REPORT INFORMATION
  Report Type: Spontaneous
  Country: IT (occurrence: None)
  Receive Date: 20150623
  Receipt Date: 20150623
  Transmission Date: 20150821
  Serious: Yes (Other)
  Sender: FDA-Public Use
  Company Number: KAD201506-001811

PATIENT
  Age: 76 Year
  Sex: Female

DRUGS (5)
  1. LODOZ (BISOPROLOL FUMARATE, HYDROCHLOROTHIAZIDE) (BISOPROLOL FUMARATE, HYDROCHLOROTHIAZIDE) [Concomitant]
  2. RIBAVIRIN (RIBAVIRIN) [Suspect]
     Active Substance: RIBAVIRIN
     Indication: HEPATITIS C
     Dosage: 1 UNIT
     Route: 048
     Dates: start: 20150501, end: 20150526
  3. VALSARTAN. [Concomitant]
     Active Substance: VALSARTAN
  4. SOVALDI [Suspect]
     Active Substance: SOFOSBUVIR
     Indication: HEPATITIS C
     Dosage: ONE UNIT
     Route: 048
     Dates: start: 20150501, end: 20150526
  5. SOFOSBUVIR (SOFOSBUVIR) [Suspect]
     Active Substance: SOFOSBUVIR
     Indication: HEPATITIS C
     Dosage: 1 UNIT
     Route: 048
     Dates: start: 20150501, end: 20150526

REACTIONS (1)
  - Atrial fibrillation [None]

NARRATIVE: CASE EVENT DATE: 20150526
